FAERS Safety Report 8773129 (Version 1)
Quarter: 2012Q4

REPORT INFORMATION
  Report Type: 
  Country: US (occurrence: US)
  Receive Date: 20120907
  Receipt Date: 20120907
  Transmission Date: 20130627
  Serious: Yes (Other)
  Sender: FDA-Public Use
  Company Number: US-ASTELLAS-2012US007471

PATIENT
  Sex: Male

DRUGS (1)
  1. PROGRAF [Suspect]
     Indication: TRANSPLANT
     Dosage: UNK
     Route: 065

REACTIONS (4)
  - Central nervous system lesion [Unknown]
  - Posterior reversible encephalopathy syndrome [Recovering/Resolving]
  - Visual impairment [Not Recovered/Not Resolved]
  - Immunosuppressant drug level increased [Unknown]
